FAERS Safety Report 7015073-X (Version None)
Quarter: 2010Q3

REPORT INFORMATION
  Report Type: 
  Country: None (occurrence: None)
  Receive Date: 20100927
  Receipt Date: 20100913
  Transmission Date: 20110219
  Serious: Yes (Other)
  Sender: FDA-Public Use
  Company Number: DE-PURDUE-GBR-2010-0007047

PATIENT
  Age: 17 Year
  Sex: Female

DRUGS (4)
  1. NON-PMN THEOPHYLLINE [Suspect]
     Indication: ASTHMA
     Route: 055
  2. ALBUTEROL [Suspect]
     Indication: ASTHMA
     Dosage: 0.2 MG, EVERY 2-3 HOURS
     Route: 055
  3. ALBUTEROL [Suspect]
     Route: 042
  4. PREDNISOLONE [Concomitant]

REACTIONS (1)
  - HYPERLACTACIDAEMIA [None]
